FAERS Safety Report 10586412 (Version 5)
Quarter: 2015Q3

REPORT INFORMATION
  Report Type: Report from Study
  Country: CZ (occurrence: CZ)
  Receive Date: 20141117
  Receipt Date: 20150930
  Transmission Date: 20151125
  Serious: Yes (Hospitalization)
  Sender: FDA-Public Use
  Company Number: CZ-ROCHE-1466404

PATIENT
  Age: 52 Year
  Sex: Female
  Weight: 87 kg

DRUGS (12)
  1. MAXITROL [Concomitant]
     Active Substance: DEXAMETHASONE\NEOMYCIN SULFATE\POLYMYXIN B SULFATE
     Indication: CONJUNCTIVITIS
     Route: 065
     Dates: start: 20140903
  2. ESSENTIALE FORTE [Concomitant]
     Indication: LIVER FUNCTION TEST ABNORMAL
     Route: 065
     Dates: start: 20140909
  3. NALGESIN (CZECH REPUBLIC) [Concomitant]
     Indication: ARTHRALGIA
     Route: 065
     Dates: start: 20140809
  4. GELARGIN [Concomitant]
     Active Substance: FLUOCINOLONE ACETONIDE
     Indication: DRY SKIN
     Route: 065
     Dates: start: 20140827
  5. IBALGIN [Concomitant]
     Active Substance: IBUPROFEN
     Indication: ARTHRALGIA
     Route: 065
     Dates: start: 20140809
  6. KERASAL [Concomitant]
     Active Substance: MENTHOL
     Indication: DRY SKIN
     Route: 065
     Dates: start: 20140827
  7. HELICID [Concomitant]
     Indication: PROPHYLAXIS
     Route: 065
     Dates: start: 20141029, end: 20141104
  8. BATRAFEN [Concomitant]
     Indication: FUNGAL INFECTION
     Route: 065
     Dates: start: 20140827
  9. PARALEN (CZECH REPUBLIC) [Concomitant]
     Indication: ARTHRALGIA
     Route: 065
     Dates: start: 20140820
  10. GELARGIN [Concomitant]
     Active Substance: FLUOCINOLONE ACETONIDE
     Route: 065
     Dates: start: 20140827
  11. VEMURAFENIB [Suspect]
     Active Substance: VEMURAFENIB
     Indication: MALIGNANT MELANOMA
     Dosage: DATE OF MOST RECENT DOSE OF VEMURAFENIB/PLACEBO PRIOR TO FIRST EPISODE OF AE ONSET : 22/SEP/2014?DAT
     Route: 048
     Dates: start: 20140730
  12. KERASAL [Concomitant]
     Active Substance: MENTHOL
     Route: 065
     Dates: start: 20140827

REACTIONS (1)
  - Vertigo positional [Recovered/Resolved with Sequelae]

NARRATIVE: CASE EVENT DATE: 20140922
